FAERS Safety Report 5123974-2 (Version None)
Quarter: 2006Q4

REPORT INFORMATION
  Report Type: 
  Country: None (occurrence: None)
  Receive Date: 20061010
  Receipt Date: 20060530
  Transmission Date: 20070319
  Serious: Yes (Death)
  Sender: FDA-Public Use
  Company Number: JP-NOVOPROD-253771

PATIENT
  Sex: Male
  Weight: 1 kg

DRUGS (15)
  1. NOVOSEVEN [Suspect]
     Indication: HEPATIC HAEMORRHAGE
     Dosage: 0.4 MG, TID
     Dates: start: 20060523, end: 20060524
  2. SOLU-CORTEF [Concomitant]
     Dosage: 260 MG, UNK
     Route: 042
     Dates: start: 20060523, end: 20060524
  3. MORPHINE [Concomitant]
     Dosage: 80 UG, UNK
     Dates: start: 20060522, end: 20060524
  4. INOVAN [Concomitant]
     Dosage: 1.3 MG, UNK
     Dates: start: 20060522, end: 20060524
  5. DOBUTREX [Concomitant]
     Dosage: 3 MG, UNK
     Dates: start: 20060522, end: 20060524
  6. DORMICUM                           /00634101/ [Concomitant]
     Dosage: 3 MG, UNK
     Dates: start: 20060523, end: 20060524
  7. LUNG SURFACTANTS [Concomitant]
     Dosage: 60 MG, UNK
     Dates: start: 20060523, end: 20060523
  8. SOLU-MEDROL [Concomitant]
     Dosage: 19.5 MG, UNK
     Dates: start: 20060524, end: 20060524
  9. FAMOTIDINE [Concomitant]
     Dosage: .7 MG, UNK
     Route: 042
     Dates: start: 20060524, end: 20060524
  10. KAYTWO [Concomitant]
     Dosage: 1 MG, UNK
     Route: 042
     Dates: start: 20060522, end: 20060522
  11. HEPARIN [Concomitant]
     Dosage: 50 IU, UNK
     Route: 042
     Dates: start: 20060522, end: 20060522
  12. HUMULIN 70/30 [Concomitant]
     Dosage: 7.8 IU, UNK
     Route: 042
     Dates: start: 20060522, end: 20060524
  13. CALCICOL [Concomitant]
     Dosage: .3 G, UNK
     Route: 042
     Dates: start: 20060517, end: 20060524
  14. SODIUM CHLORIDE [Concomitant]
     Dosage: 1 ML, UNK
     Route: 042
     Dates: start: 20060517, end: 20060522
  15. SODIUM BICARBONATE [Concomitant]
     Dosage: 8.3 ML, UNK

REACTIONS (12)
  - ABDOMINAL DISTENSION [None]
  - BLOOD PRESSURE DECREASED [None]
  - CEREBRAL HAEMORRHAGE NEONATAL [None]
  - CONVULSION NEONATAL [None]
  - DRUG INEFFECTIVE [None]
  - GENERALISED OEDEMA [None]
  - MULTI-ORGAN FAILURE [None]
  - NEONATAL ANURIA [None]
  - NEONATAL RESPIRATORY FAILURE [None]
  - PALLOR [None]
  - PLATELET COUNT DECREASED [None]
  - SHOCK HAEMORRHAGIC [None]
